FAERS Safety Report 12749265 (Version 1)
Quarter: 2016Q3

REPORT INFORMATION
  Report Type: Spontaneous
  Country: US (occurrence: US)
  Receive Date: 20160915
  Receipt Date: 20160915
  Transmission Date: 20161109
  Serious: No
  Sender: FDA-Public Use
  Company Number: US-ASTELLAS-2016US013733

PATIENT
  Age: 55 Year
  Sex: Female

DRUGS (2)
  1. XTANDI [Suspect]
     Active Substance: ENZALUTAMIDE
     Indication: PROSTATE CANCER
  2. XTANDI [Suspect]
     Active Substance: ENZALUTAMIDE
     Indication: DISEASE SUSCEPTIBILITY
     Route: 048
     Dates: start: 20160119

REACTIONS (3)
  - Fatigue [Unknown]
  - Off label use [Unknown]
  - Hot flush [Unknown]

NARRATIVE: CASE EVENT DATE: 20160119
